FAERS Safety Report 8580120-0 (Version None)
Quarter: 2012Q3

REPORT INFORMATION
  Report Type: 
  Country: None (occurrence: None)
  Receive Date: 20120808
  Receipt Date: 20120807
  Transmission Date: 20120928
  Serious: Yes (Hospitalization)
  Sender: FDA-Public Use
  Company Number: FI-PFIZER INC-2012192614

PATIENT

DRUGS (1)
  1. VARENICLINE [Suspect]

REACTIONS (2)
  - GASTRIC DISORDER [None]
  - ABDOMINAL PAIN UPPER [None]
